FAERS Safety Report 13899789 (Version 3)
Quarter: 2017Q4

REPORT INFORMATION
  Report Type: Spontaneous
  Country: RU (occurrence: RU)
  Receive Date: 20170823
  Receipt Date: 20171026
  Transmission Date: 20180320
  Serious: Yes (Hospitalization)
  Sender: FDA-Public Use
  Company Number: RU-ALLERGAN-1746521US

PATIENT
  Age: 41 Year
  Sex: Male

DRUGS (2)
  1. NEBIVOLOL HCL - BP [Suspect]
     Active Substance: NEBIVOLOL
     Indication: PALPITATIONS
  2. NEBIVOLOL HCL - BP [Suspect]
     Active Substance: NEBIVOLOL
     Indication: HYPERTENSION
     Dosage: 5 MG ONCE DAILY IN THE MORNING
     Route: 065
     Dates: start: 201610, end: 20170412

REACTIONS (9)
  - Urticaria [Recovered/Resolved]
  - Oropharyngeal spasm [Recovering/Resolving]
  - Toxic skin eruption [Recovered/Resolved]
  - Laryngitis allergic [Recovered/Resolved]
  - Laryngeal oedema [Recovered/Resolved]
  - Dyspnoea [Recovered/Resolved]
  - Pharyngeal hypoaesthesia [Recovered/Resolved]
  - Dysphagia [Recovered/Resolved]
  - Angioedema [Recovered/Resolved]

NARRATIVE: CASE EVENT DATE: 20170323
